FAERS Safety Report 7944448-7 (Version None)
Quarter: 2011Q4

REPORT INFORMATION
  Report Type: 
  Country: None (occurrence: None)
  Receive Date: 20111129
  Receipt Date: 20111117
  Transmission Date: 20120403
  Serious: Yes (Hospitalization)
  Sender: FDA-Public Use
  Company Number: FR-AMGEN-FRASP2011061570

PATIENT
  Age: 47 Year
  Sex: Female

DRUGS (5)
  1. EFFERALGAN                         /00020001/ [Concomitant]
     Dosage: UNK
  2. ARAVA [Concomitant]
     Dosage: 1 TABLET A DAY
  3. PREDNISONE TAB [Concomitant]
     Dosage: 3 MG, 1X/DAY, EVERY MORNING
  4. ENBREL [Suspect]
     Indication: RHEUMATOID ARTHRITIS
     Dosage: UNK
     Dates: start: 20110101, end: 20110816
  5. NEXIUM [Concomitant]
     Dosage: UNK

REACTIONS (2)
  - THYMOMA [None]
  - INFLAMMATORY PSEUDOTUMOUR [None]
